FAERS Safety Report 23524672 (Version 2)
Quarter: 2024Q2

REPORT INFORMATION
  Report Type: Spontaneous
  Country: US (occurrence: US)
  Receive Date: 20240215
  Receipt Date: 20240418
  Transmission Date: 20240716
  Serious: Yes (Other)
  Sender: FDA-Public Use
  Company Number: US-BRISTOL-MYERS SQUIBB COMPANY-2024-024465

PATIENT
  Age: 82 Year
  Sex: Female

DRUGS (1)
  1. POMALYST [Suspect]
     Active Substance: POMALIDOMIDE
     Indication: Type IIa hyperlipidaemia
     Dosage: EVERY OTHER DAY FOR 21 DAYS ON, THEN 7 DAYS OFF
     Route: 048
     Dates: start: 20200218

REACTIONS (3)
  - COVID-19 [Recovering/Resolving]
  - Off label use [Unknown]
  - Blood thyroid stimulating hormone increased [Not Recovered/Not Resolved]
